FAERS Safety Report 18213516 (Version 2)
Quarter: 2020Q3

REPORT INFORMATION
  Report Type: Spontaneous
  Country: US (occurrence: US)
  Receive Date: 20200831
  Receipt Date: 20200911
  Transmission Date: 20201103
  Serious: No
  Sender: FDA-Public Use
  Company Number: US-PFIZER INC-2020331574

PATIENT
  Age: 77 Year
  Sex: Female
  Weight: 68.04 kg

DRUGS (1)
  1. IBRANCE [Suspect]
     Active Substance: PALBOCICLIB
     Indication: BREAST CANCER METASTATIC
     Dosage: 100 MG, CYCLIC (100MG ORAL WITH WATER IN THE MORNING EVERY DAY FOR THREE WEEKS AND OFF A WEEK)
     Route: 048
     Dates: end: 20200823

REACTIONS (5)
  - Gastrooesophageal reflux disease [Recovering/Resolving]
  - Product formulation issue [Unknown]
  - Back pain [Unknown]
  - Feeding disorder [Unknown]
  - Dyspepsia [Recovering/Resolving]

NARRATIVE: CASE EVENT DATE: 202007
